FAERS Safety Report 21934905 (Version 1)
Quarter: 2023Q1

REPORT INFORMATION
  Report Type: Spontaneous
  Country: US (occurrence: US)
  Receive Date: 20230201
  Receipt Date: 20230201
  Transmission Date: 20230418
  Serious: Yes (Other)
  Sender: FDA-Public Use
  Company Number: US-EDENBRIDGE PHARMACEUTICALS, LLC-US-2023EDE000008

PATIENT
  Sex: Male

DRUGS (8)
  1. ALBENDAZOLE [Suspect]
     Active Substance: ALBENDAZOLE
     Indication: Meningoencephalitis amoebic
     Dosage: 400 MG, QD
     Route: 048
  2. SULFADIAZINE [Suspect]
     Active Substance: SULFADIAZINE
     Indication: Meningoencephalitis amoebic
     Dosage: 1500 MG, QID
     Route: 048
  3. FLUCONAZOLE [Suspect]
     Active Substance: FLUCONAZOLE
     Indication: Meningoencephalitis amoebic
     Dosage: 100 MG, QD
     Route: 048
  4. FLUCYTOSINE [Suspect]
     Active Substance: FLUCYTOSINE
     Indication: Meningoencephalitis amoebic
     Dosage: 3000 MG, QID
     Route: 065
  5. PENTAMIDINE [Suspect]
     Active Substance: PENTAMIDINE
     Indication: Meningoencephalitis amoebic
     Dosage: 330 MG, QD
     Route: 042
  6. AZITHROMYCIN [Suspect]
     Active Substance: AZITHROMYCIN
     Indication: Meningoencephalitis amoebic
     Dosage: 500 MG, QD
     Route: 048
  7. MILTEFOSINE [Suspect]
     Active Substance: MILTEFOSINE
     Indication: Meningoencephalitis amoebic
     Dosage: 50 MG, TID
     Route: 048
  8. NITROXOLINE [Suspect]
     Active Substance: NITROXOLINE
     Indication: Meningoencephalitis amoebic
     Dosage: 250 MG, TID
     Route: 048

REACTIONS (5)
  - Renal failure [Unknown]
  - Acute kidney injury [Unknown]
  - Acute kidney injury [Unknown]
  - Hypoglycaemia [Unknown]
  - Neutrophil count decreased [Unknown]
